FAERS Safety Report 6597181-0 (Version None)
Quarter: 2010Q1

REPORT INFORMATION
  Report Type: 
  Country: None (occurrence: None)
  Receive Date: 20100223
  Receipt Date: 20100216
  Transmission Date: 20100710
  Serious: Yes (Other)
  Sender: FDA-Public Use
  Company Number: JP-SANOFI-AVENTIS-2010SA008919

PATIENT

DRUGS (3)
  1. PLAVIX [Suspect]
     Indication: PROPHYLAXIS
     Route: 048
     Dates: start: 20100206
  2. ASPIRIN [Concomitant]
     Dates: start: 20100206
  3. PLETAL [Concomitant]

REACTIONS (1)
  - BLOOD SODIUM DECREASED [None]
